FAERS Safety Report 8277742-3 (Version None)
Quarter: 2012Q2

REPORT INFORMATION
  Report Type: 
  Country: None (occurrence: None)
  Receive Date: 20120412
  Receipt Date: 20120329
  Transmission Date: 20120825
  Serious: Yes (Hospitalization)
  Sender: FDA-Public Use
  Company Number: US-PFIZER INC-2012083811

PATIENT
  Age: 15 Year
  Sex: Male

DRUGS (2)
  1. IBUPROFEN TABLETS [Suspect]
     Dosage: 50 PILLS
     Route: 048
  2. NAPROXEN [Suspect]
     Dosage: 150 PILLS
     Route: 048

REACTIONS (6)
  - ACIDOSIS [None]
  - INTENTIONAL OVERDOSE [None]
  - VOMITING [None]
  - SHOCK [None]
  - CARDIAC MURMUR [None]
  - SUICIDE ATTEMPT [None]
